FAERS Safety Report 4686111-4 (Version None)
Quarter: 2005Q2

REPORT INFORMATION
  Report Type: 
  Country: None (occurrence: None)
  Receive Date: 20050603
  Receipt Date: 20050524
  Transmission Date: 20051028
  Serious: Yes (Death)
  Sender: FDA-Public Use
  Company Number: HQWYE731113MAY05

PATIENT
  Age: 26 Year
  Sex: Female

DRUGS (1)
  1. ALESSE [Suspect]
     Indication: MENORRHAGIA
     Dosage: 1 TABLET 1X PER 1 DAY, ORAL
     Route: 048

REACTIONS (2)
  - FOREIGN BODY ASPIRATION [None]
  - MESENTERIC OCCLUSION [None]
